FAERS Safety Report 24551237 (Version 1)
Quarter: 2024Q4

REPORT INFORMATION
  Report Type: Spontaneous
  Country: US (occurrence: US)
  Receive Date: 20241025
  Receipt Date: 20241025
  Transmission Date: 20250115
  Serious: Yes (Hospitalization, Other)
  Sender: BOEHRINGER INGELHEIM
  Company Number: US-Komodo Health-a23aa000003u1m5AAA

PATIENT
  Age: 78 Year
  Sex: Female

DRUGS (1)
  1. TRADJENTA [Suspect]
     Active Substance: LINAGLIPTIN
     Indication: Diabetes mellitus
     Dates: start: 20241002

REACTIONS (3)
  - Transient ischaemic attack [Recovered/Resolved]
  - Blood sodium decreased [Recovered/Resolved]
  - Blood pressure increased [Recovered/Resolved]
